FAERS Safety Report 9431858 (Version 1)
Quarter: 2013Q3

REPORT INFORMATION
  Report Type: Spontaneous
  Country: GB (occurrence: GB)
  Receive Date: 20130731
  Receipt Date: 20130731
  Transmission Date: 20140515
  Serious: Yes (Other)
  Sender: FDA-Public Use
  Company Number: PHFR2013GB003153

PATIENT
  Age: 54 Year
  Sex: Male

DRUGS (3)
  1. CLOZARIL [Suspect]
     Indication: SCHIZOPHRENIA
     Dosage: UNK UKN, UNK
     Route: 048
     Dates: start: 20130515
  2. CLOZARIL [Suspect]
     Dosage: 200 MG, UNK
     Route: 048
  3. CLOZARIL [Suspect]
     Dosage: 150 MG, UNK
     Route: 048

REACTIONS (5)
  - Viral infection [Unknown]
  - Somnolence [Recovered/Resolved]
  - Pyrexia [Recovered/Resolved]
  - Heart rate increased [Recovered/Resolved]
  - Salivary hypersecretion [Not Recovered/Not Resolved]
